FAERS Safety Report 7483219-5 (Version None)
Quarter: 2011Q2

REPORT INFORMATION
  Report Type: 
  Country: None (occurrence: None)
  Receive Date: 20110516
  Receipt Date: 20101208
  Transmission Date: 20111010
  Serious: No
  Sender: FDA-Public Use
  Company Number: US-ALLERGAN-1015936US

PATIENT
  Age: 14 Year
  Sex: Female

DRUGS (2)
  1. ZYMAR [Suspect]
     Indication: OCULAR HYPERAEMIA
     Dosage: 1 DROP INSTILLED IN THE RIGHT EYE EVERY 2 HOURS
     Route: 047
     Dates: start: 20101206
  2. ZYRTEC [Concomitant]
     Indication: SEASONAL ALLERGY

REACTIONS (3)
  - DYSGEUSIA [None]
  - ANXIETY [None]
  - INSOMNIA [None]
